FAERS Safety Report 12779785 (Version 1)
Quarter: 2016Q3

REPORT INFORMATION
  Report Type: Spontaneous
  Country: US (occurrence: US)
  Receive Date: 20160925
  Receipt Date: 20160925
  Transmission Date: 20161109
  Serious: Yes (Life-Threatening, Other)
  Sender: FDA-Public Use
  Company Number: None

PATIENT
  Age: 41 Year
  Sex: Male
  Weight: 101.25 kg

DRUGS (9)
  1. LISINOPRIL. [Concomitant]
     Active Substance: LISINOPRIL
  2. NUCYNTA [Suspect]
     Active Substance: TAPENTADOL HYDROCHLORIDE
     Indication: SPINAL OPERATION
     Route: 048
     Dates: start: 20160820
  3. NORTRIPTYLINE [Concomitant]
     Active Substance: NORTRIPTYLINE
  4. LEXAPRO [Concomitant]
     Active Substance: ESCITALOPRAM OXALATE
  5. ZAFIRLUKAST. [Concomitant]
     Active Substance: ZAFIRLUKAST
  6. METHOCARBAMOL. [Concomitant]
     Active Substance: METHOCARBAMOL
  7. SENEXON [Concomitant]
     Active Substance: SENNOSIDES A AND B
  8. IBUPROFEN. [Concomitant]
     Active Substance: IBUPROFEN
  9. PRAVASTATIN. [Concomitant]
     Active Substance: PRAVASTATIN

REACTIONS (2)
  - Depression [None]
  - Libido disorder [None]

NARRATIVE: CASE EVENT DATE: 20160820
